FAERS Safety Report 6264793-3 (Version None)
Quarter: 2009Q3

REPORT INFORMATION
  Report Type: 
  Country: None (occurrence: None)
  Receive Date: 20090710
  Receipt Date: 20090702
  Transmission Date: 20100115
  Serious: Yes (Other)
  Sender: FDA-Public Use
  Company Number: JP-B.I. PHARMACEUTICALS,INC./RIDGEFIELD-2009-DE-04505GD

PATIENT

DRUGS (2)
  1. PRAMIPEXOLE DIHYDROCHLORIDE [Suspect]
     Indication: PARKINSON'S DISEASE
  2. LEVODOPA/DCI [Suspect]
     Indication: PARKINSON'S DISEASE

REACTIONS (4)
  - PATHOLOGICAL GAMBLING [None]
  - ROAD TRAFFIC ACCIDENT [None]
  - STEREOTYPY [None]
  - SUDDEN ONSET OF SLEEP [None]
